FAERS Safety Report 8850470 (Version 1)
Quarter: 2012Q4

REPORT INFORMATION
  Report Type: 
  Country: IT (occurrence: IT)
  Receive Date: 20121019
  Receipt Date: 20121019
  Transmission Date: 20130627
  Serious: Yes (Hospitalization)
  Sender: FDA-Public Use
  Company Number: PHHY2012IT092720

PATIENT
  Age: 68 Year
  Sex: Male

DRUGS (2)
  1. ATENOLOL [Suspect]
     Dosage: 25 mg, Daily
     Route: 048
     Dates: start: 20080101, end: 20121008
  2. RYTMONORM [Interacting]
     Dosage: 650 mg, Daily
     Route: 048
     Dates: start: 20080101

REACTIONS (3)
  - Atrial fibrillation [Recovered/Resolved]
  - Palpitations [Recovered/Resolved]
  - Drug interaction [Recovered/Resolved]
